FAERS Safety Report 12215348 (Version 3)
Quarter: 2018Q1

REPORT INFORMATION
  Report Type: Spontaneous
  Country: US (occurrence: US)
  Receive Date: 20160328
  Receipt Date: 20180329
  Transmission Date: 20180508
  Serious: Yes (Hospitalization, Disabling, Other)
  Sender: FDA-Public Use
  Company Number: US-ENDO PHARMACEUTICALS INC.-2015-005160

PATIENT
  Age: 49 Year
  Sex: Male
  Weight: 102.1 kg

DRUGS (7)
  1. TRAMADOL. [Concomitant]
     Active Substance: TRAMADOL
     Indication: PAIN
     Dosage: UNK UNKNOWN, UNKNOWN
     Route: 065
     Dates: start: 200612
  2. TESTIM [Suspect]
     Active Substance: TESTOSTERONE
     Dosage: UNK UNKNOWN, UNKNOWN
     Route: 062
     Dates: start: 200801, end: 201106
  3. TESTIM [Suspect]
     Active Substance: TESTOSTERONE
     Dosage: 50 MG, UNKNOWN
     Route: 062
     Dates: start: 200701, end: 200703
  4. TESTIM [Suspect]
     Active Substance: TESTOSTERONE
     Indication: ANDROGEN REPLACEMENT THERAPY
     Dosage: UNK UNKNOWN, UNKNOWN
     Route: 062
     Dates: end: 20140324
  5. TESTIM [Suspect]
     Active Substance: TESTOSTERONE
     Dosage: UNK UNKNOWN, UNKNOWN
     Route: 062
     Dates: start: 20060831, end: 200701
  6. PAROXETINE. [Concomitant]
     Active Substance: PAROXETINE
     Indication: ANXIETY
     Dosage: UNK UNKNOWN, UNKNOWN
     Route: 065
     Dates: start: 200608
  7. FORTESTA [Suspect]
     Active Substance: TESTOSTERONE
     Indication: ANDROGEN REPLACEMENT THERAPY
     Dosage: UNK UNKNOWN, UNKNOWN
     Route: 065
     Dates: start: 20070601, end: 20071226

REACTIONS (11)
  - Arteriosclerosis [Unknown]
  - Acute myocardial infarction [Not Recovered/Not Resolved]
  - Amnesia [Unknown]
  - Vascular stent stenosis [Unknown]
  - Hypoaesthesia [Unknown]
  - Myocardial infarction [Not Recovered/Not Resolved]
  - Coronary artery disease [Not Recovered/Not Resolved]
  - Myocardial infarction [Not Recovered/Not Resolved]
  - Heart rate irregular [Unknown]
  - Polycythaemia [Unknown]
  - Thrombosis [Unknown]

NARRATIVE: CASE EVENT DATE: 2007
